FAERS Safety Report 7706040-9 (Version None)
Quarter: 2011Q3

REPORT INFORMATION
  Report Type: 
  Country: None (occurrence: None)
  Receive Date: 20110824
  Receipt Date: 20110822
  Transmission Date: 20111222
  Serious: Yes (Other)
  Sender: FDA-Public Use
  Company Number: PHHY2011FR74970

PATIENT
  Sex: Female

DRUGS (3)
  1. METHERGINE [Suspect]
     Indication: MENOMETRORRHAGIA
     Dosage: 30 DRP, TID
     Route: 048
  2. PREDNISONE [Concomitant]
     Dosage: 15 MG, DAILY
  3. CYCLOPHOSPHAMIDE [Concomitant]
     Dosage: 100 MG, FORTNIGHTLY

REACTIONS (6)
  - VASOSPASM [None]
  - RENAL INFARCT [None]
  - ARTERIOGRAM ABNORMAL [None]
  - ARTERITIS OBLITERANS [None]
  - SKIN NECROSIS [None]
  - PERIPHERAL ISCHAEMIA [None]
